FAERS Safety Report 12199057 (Version 1)
Quarter: 2016Q1

REPORT INFORMATION
  Report Type: Spontaneous
  Country: US (occurrence: None)
  Receive Date: 20160321
  Receipt Date: 20160321
  Transmission Date: 20160526
  Serious: Yes (Life-Threatening)
  Sender: FDA-Public Use
  Company Number: None

PATIENT
  Age: 66 Year
  Sex: Male

DRUGS (13)
  1. KCL [Concomitant]
     Active Substance: POTASSIUM CHLORIDE
  2. PRAZOSIN [Suspect]
     Active Substance: PRAZOSIN
     Indication: POST-TRAUMATIC STRESS DISORDER
     Dosage: 1 CAPSULE AT BEDTIME TAKEN BY MOUTH
     Route: 048
     Dates: start: 20150702, end: 20160307
  3. LANTUS [Concomitant]
     Active Substance: INSULIN GLARGINE
  4. ASA [Concomitant]
     Active Substance: ASPIRIN
  5. VITAMIN D3 [Concomitant]
     Active Substance: CHOLECALCIFEROL
  6. TOPIRAMATE. [Concomitant]
     Active Substance: TOPIRAMATE
  7. LEVOTHYROXINE. [Concomitant]
     Active Substance: LEVOTHYROXINE
  8. VENLAFAXINE ER [Concomitant]
     Active Substance: VENLAFAXINE HYDROCHLORIDE
  9. TRAMADOL. [Concomitant]
     Active Substance: TRAMADOL
  10. FOLIC ACID. [Concomitant]
     Active Substance: FOLIC ACID
  11. CLOPIDOGREL [Concomitant]
     Active Substance: CLOPIDOGREL BISULFATE
  12. OMEPRAZOLE. [Concomitant]
     Active Substance: OMEPRAZOLE
  13. ATORVASTATIN [Concomitant]
     Active Substance: ATORVASTATIN

REACTIONS (7)
  - Asthenia [None]
  - Product physical issue [None]
  - Malaise [None]
  - Fatigue [None]
  - Consciousness fluctuating [None]
  - Product physical consistency issue [None]
  - Product colour issue [None]

NARRATIVE: CASE EVENT DATE: 20160303
